FAERS Safety Report 5655674-4 (Version None)
Quarter: 2008Q1

REPORT INFORMATION
  Report Type: 
  Country: None (occurrence: None)
  Receive Date: 20080212
  Receipt Date: 20071114
  Transmission Date: 20080703
  Serious: Yes (Other)
  Sender: FDA-Public Use
  Company Number: MC200700705

PATIENT
  Sex: Male

DRUGS (4)
  1. ANGIOMAX [Suspect]
     Indication: PERCUTANEOUS CORONARY INTERVENTION
     Dosage: BOLUS, IV BOLUS, INTRAVENOUS
     Route: 040
     Dates: start: 20071114, end: 20071114
  2. ANGIOMAX [Suspect]
     Indication: PERCUTANEOUS CORONARY INTERVENTION
     Dosage: BOLUS, IV BOLUS, INTRAVENOUS
     Route: 040
     Dates: start: 20071114
  3. PLAVIX [Suspect]
     Dosage: SINGLE (PRE-PCI)
     Dates: start: 20071114, end: 20071114
  4. ASPIRIN [Suspect]
     Dosage: SINGLE(PRE-PCI)
     Dates: start: 20071114, end: 20071114

REACTIONS (1)
  - CORONARY ARTERY THROMBOSIS [None]
